FAERS Safety Report 19454200 (Version 1)
Quarter: 2021Q2

REPORT INFORMATION
  Report Type: Spontaneous
  Country: BE (occurrence: BE)
  Receive Date: 20210623
  Receipt Date: 20210623
  Transmission Date: 20210717
  Serious: Yes (Death)
  Sender: FDA-Public Use
  Company Number: BE-TERSERA THERAPEUTICS LLC-2021TRS002902

PATIENT

DRUGS (2)
  1. SOMATULINE AUTOGEL [Suspect]
     Active Substance: LANREOTIDE ACETATE
     Indication: NEUROENDOCRINE TUMOUR
     Dosage: 120 MG
     Route: 065
  2. XERMELO [Suspect]
     Active Substance: TELOTRISTAT ETHYL
     Indication: CARCINOID SYNDROME
     Dosage: UNK
     Route: 065

REACTIONS (1)
  - Death [Fatal]
